FAERS Safety Report 9804231 (Version 1)
Quarter: 2014Q1

REPORT INFORMATION
  Report Type: Report from Study
  Country: CA (occurrence: CA)
  Receive Date: 20140108
  Receipt Date: 20140108
  Transmission Date: 20141002
  Serious: Yes (Other)
  Sender: FDA-Public Use
  Company Number: CA-BAYER-2014-002895

PATIENT
  Age: 52 Year
  Sex: Female

DRUGS (5)
  1. BETASERON [Suspect]
     Indication: MULTIPLE SCLEROSIS
     Dosage: 0.3 MG, UNK
     Dates: start: 20031001, end: 20131206
  2. PAXIL [Concomitant]
  3. SYNTHROID [Concomitant]
  4. ZOPICLONE [Concomitant]
  5. PAROXETINE [Concomitant]

REACTIONS (2)
  - Multiple sclerosis [Unknown]
  - Drug ineffective [None]
